FAERS Safety Report 9557611 (Version 1)
Quarter: 2013Q3

REPORT INFORMATION
  Report Type: Report from Study
  Country: RU (occurrence: RU)
  Receive Date: 20130926
  Receipt Date: 20130926
  Transmission Date: 20140515
  Serious: Yes (Death)
  Sender: FDA-Public Use
  Company Number: RU-SANOFI-AVENTIS-2013SA094788

PATIENT
  Age: 59 Year
  Sex: Male

DRUGS (3)
  1. TAXOTERE [Suspect]
     Indication: NON-SMALL CELL LUNG CANCER
     Route: 042
     Dates: start: 20130731
  2. DEXAMETHASONE [Concomitant]
     Route: 048
     Dates: start: 20130731
  3. DEXAMETHASONE [Concomitant]
     Route: 048
     Dates: start: 20130821, end: 20130821

REACTIONS (1)
  - Pulmonary haemorrhage [Fatal]
